FAERS Safety Report 5818700-5 (Version None)
Quarter: 2008Q3

REPORT INFORMATION
  Report Type: 
  Country: None (occurrence: None)
  Receive Date: 20080723
  Receipt Date: 20080605
  Transmission Date: 20090109
  Serious: No
  Sender: FDA-Public Use
  Company Number: US-BAYER-200825089NA

PATIENT
  Age: 52 Year

DRUGS (6)
  1. MAGNEVIST [Suspect]
     Indication: NUCLEAR MAGNETIC RESONANCE IMAGING ABDOMINAL
     Dosage: AS USED: 20 ML  UNIT DOSE: 20 ML
     Route: 042
     Dates: start: 20080530, end: 20080530
  2. ALLEGRA [Concomitant]
     Route: 065
  3. PROZAC [Concomitant]
     Route: 065
  4. LORAZEPAM [Concomitant]
     Route: 065
  5. PATANOL [Concomitant]
     Route: 065
  6. FLURONES [Concomitant]

REACTIONS (1)
  - URTICARIA [None]
